FAERS Safety Report 4667090-2 (Version None)
Quarter: 2005Q2

REPORT INFORMATION
  Report Type: 
  Country: None (occurrence: None)
  Receive Date: 20050520
  Receipt Date: 20050223
  Transmission Date: 20051028
  Serious: Yes (Other)
  Sender: FDA-Public Use
  Company Number: PHBS2005BE02992

PATIENT
  Sex: Male

DRUGS (14)
  1. ZOMETA [Suspect]
     Indication: CHRONIC LYMPHOCYTIC LEUKAEMIA
     Route: 042
     Dates: start: 20021001, end: 20041101
  2. FOLIC ACID [Concomitant]
     Route: 065
  3. ZANTAC [Concomitant]
     Route: 065
  4. XANAX [Concomitant]
     Route: 064
  5. BACTRIM [Concomitant]
     Route: 065
  6. LASIX [Concomitant]
     Route: 065
  7. MEDROL [Concomitant]
     Route: 065
  8. SELECTOL [Concomitant]
     Route: 065
  9. CIPRAMIL [Concomitant]
     Route: 065
  10. CACIT D3 [Concomitant]
     Route: 065
  11. DUOVENT [Concomitant]
     Route: 065
  12. SERETIDE [Concomitant]
     Route: 065
  13. SINTROM [Concomitant]
     Route: 065
  14. OMIC [Concomitant]
     Route: 065

REACTIONS (2)
  - OSTEOMYELITIS [None]
  - TOOTH EXTRACTION [None]
